FAERS Safety Report 6737472-3 (Version None)
Quarter: 2010Q2

REPORT INFORMATION
  Report Type: 
  Country: None (occurrence: None)
  Receive Date: 20100524
  Receipt Date: 20100512
  Transmission Date: 20101027
  Serious: Yes (Hospitalization, Other)
  Sender: FDA-Public Use
  Company Number: US-BAYER-201016246NA

PATIENT
  Age: 37 Year
  Sex: Female
  Weight: 56 kg

DRUGS (4)
  1. YASMIN [Suspect]
     Indication: CONTRACEPTION
     Route: 048
     Dates: start: 20070101, end: 20080310
  2. LOVENOX [Concomitant]
     Dosage: UNIT DOSE: 50 MG
  3. COUMADIN [Concomitant]
  4. IRON [Concomitant]

REACTIONS (9)
  - CHEST DISCOMFORT [None]
  - CHEST PAIN [None]
  - DYSPNOEA [None]
  - LEUKOPENIA [None]
  - MENORRHAGIA [None]
  - PULMONARY EMBOLISM [None]
  - PYREXIA [None]
  - SYNCOPE [None]
  - TACHYARRHYTHMIA [None]
